FAERS Safety Report 13463853 (Version 1)
Quarter: 2017Q2

REPORT INFORMATION
  Report Type: Spontaneous
  Country: US (occurrence: US)
  Receive Date: 20170420
  Receipt Date: 20170420
  Transmission Date: 20170830
  Serious: Yes (Other)
  Sender: FDA-Public Use
  Company Number: US-ROCHE-714504

PATIENT
  Age: 19 Year
  Sex: Male
  Weight: 83 kg

DRUGS (4)
  1. ACETAMINOPHEN AND CODEINE [Concomitant]
     Active Substance: ACETAMINOPHEN\CODEINE PHOSPHATE
     Dosage: PRESCRIBED FOR 07 DAYS
     Route: 065
  2. ACCUTANE [Suspect]
     Active Substance: ISOTRETINOIN
     Indication: ACNE
     Route: 065
     Dates: start: 19940404, end: 19940711
  3. CYCLOCORT [Concomitant]
     Active Substance: AMCINONIDE
     Dosage: PRESCRIBED FOR 14 DAYS
     Route: 065
  4. ACCUTANE [Suspect]
     Active Substance: ISOTRETINOIN
     Route: 065
     Dates: start: 19940712, end: 19940829

REACTIONS (4)
  - Depression [Not Recovered/Not Resolved]
  - Inflammatory bowel disease [Unknown]
  - Dry skin [Unknown]
  - Colitis ulcerative [Unknown]

NARRATIVE: CASE EVENT DATE: 19940506
